FAERS Safety Report 6855663-8 (Version None)
Quarter: 2010Q3

REPORT INFORMATION
  Report Type: 
  Country: None (occurrence: None)
  Receive Date: 20100719
  Receipt Date: 20100429
  Transmission Date: 20110219
  Serious: No
  Sender: FDA-Public Use
  Company Number: US-KINGPHARMUSA00001-K201000518

PATIENT
  Sex: Female
  Weight: 53.061 kg

DRUGS (5)
  1. LEVOXYL [Suspect]
     Indication: HYPOTHYROIDISM
     Dosage: 125 MCG QD
  2. LEVOXYL [Suspect]
     Dosage: 125 MCG, 1.5 TABS QD
     Dates: start: 20100401
  3. LEVOXYL [Suspect]
     Dosage: 175 MCG, QD
  4. CYTOMEL [Suspect]
     Indication: HYPOTHYROIDISM
     Dosage: UNK
     Dates: start: 20100101, end: 20100301
  5. YAZ [Concomitant]
     Indication: UTERINE LEIOMYOMA
     Dosage: UNK
     Dates: start: 20090901

REACTIONS (8)
  - DRUG INEFFECTIVE [None]
  - FATIGUE [None]
  - FEELING COLD [None]
  - MEMORY IMPAIRMENT [None]
  - ONYCHOCLASIS [None]
  - WEIGHT DECREASED [None]
  - WEIGHT INCREASED [None]
  - WEIGHT LOSS POOR [None]
